FAERS Safety Report 16541729 (Version 1)
Quarter: 2019Q3

REPORT INFORMATION
  Report Type: Spontaneous
  Country: CA (occurrence: CA)
  Receive Date: 20190708
  Receipt Date: 20190708
  Transmission Date: 20191004
  Serious: Yes (Other)
  Sender: FDA-Public Use
  Company Number: CA-MYLANLABS-2019M1061839

PATIENT
  Age: 45 Year
  Sex: Male

DRUGS (2)
  1. TRYPTOPHAN                         /00215101/ [Suspect]
     Active Substance: TRYPTOPHAN
     Indication: PRODUCT USED FOR UNKNOWN INDICATION
     Dosage: UNK
  2. NIASPAN [Suspect]
     Active Substance: NIACIN
     Indication: PRODUCT USED FOR UNKNOWN INDICATION
     Dosage: UNK
     Route: 048

REACTIONS (5)
  - Serotonin syndrome [Unknown]
  - Skin warm [Unknown]
  - Heart rate increased [Unknown]
  - Hyperhidrosis [Unknown]
  - Tachycardia [Unknown]
